FAERS Safety Report 9472553 (Version 1)
Quarter: 2013Q3

REPORT INFORMATION
  Report Type: Spontaneous
  Country: US (occurrence: US)
  Receive Date: 20130823
  Receipt Date: 20130823
  Transmission Date: 20140515
  Serious: No
  Sender: FDA-Public Use
  Company Number: US-BAYER-2013-095953

PATIENT
  Sex: 0

DRUGS (2)
  1. NEXAVAR [Suspect]
  2. PROTRIPTYLINE [Suspect]

REACTIONS (1)
  - Enzyme level increased [None]
